FAERS Safety Report 9997417 (Version 1)
Quarter: 2014Q1

REPORT INFORMATION
  Report Type: Spontaneous
  Country: US (occurrence: None)
  Receive Date: 20140218
  Receipt Date: 20140218
  Transmission Date: 20141002
  Serious: Yes (Other)
  Sender: FDA-Public Use
  Company Number: 1000051954

PATIENT
  Age: 56 Year
  Sex: Female

DRUGS (6)
  1. VIIBRYD [Suspect]
     Indication: DEPRESSION
     Dosage: 10MG (10 MG, 1 IN 1 D), ORAL
     Route: 048
     Dates: start: 20131017, end: 20131023
  2. VIIBRYD [Suspect]
     Indication: ANXIETY
     Dosage: 10MG (10 MG, 1 IN 1 D), ORAL
     Route: 048
     Dates: start: 20131017, end: 20131023
  3. VIIBRYD (VILAZODONE HYDROCHLORIDE) (40 MILLIGRAM, TABLETS) [Suspect]
     Indication: DEPRESSION
     Dosage: 40MG (40 MG, 1 IN 1 D), ORAL
     Route: 048
     Dates: start: 20131031, end: 20131126
  4. VIIBRYD (VILAZODONE HYDROCHLORIDE) (40 MILLIGRAM, TABLETS) [Suspect]
     Indication: ANXIETY
     Dosage: 40MG (40 MG, 1 IN 1 D), ORAL
     Route: 048
     Dates: start: 20131031, end: 20131126
  5. VIIBRYD [Suspect]
     Indication: DEPRESSION
     Dosage: 10MG (10 MG, 1 IN 1 D), ORAL
     Route: 048
     Dates: start: 20131129, end: 20131206
  6. VIIBRYD [Suspect]
     Indication: ANXIETY
     Dosage: 10MG (10 MG, 1 IN 1 D), ORAL
     Route: 048
     Dates: start: 20131129, end: 20131206

REACTIONS (11)
  - Anxiety [None]
  - Muscle spasms [None]
  - Speech disorder [None]
  - Insomnia [None]
  - Nausea [None]
  - Diarrhoea [None]
  - Flatulence [None]
  - Abnormal dreams [None]
  - Agitation [None]
  - Off label use [None]
  - Hyperhidrosis [None]
